FAERS Safety Report 8978308 (Version 2)
Quarter: 2013Q1

REPORT INFORMATION
  Report Type: Spontaneous
  Country: US (occurrence: US)
  Receive Date: 20121221
  Receipt Date: 20130205
  Transmission Date: 20140127
  Serious: Yes (Other)
  Sender: FDA-Public Use
  Company Number: US-AMGEN-USASP2012081860

PATIENT
  Age: 64 Year
  Sex: Male
  Weight: 91.16 kg

DRUGS (18)
  1. NEULASTA [Suspect]
     Indication: PROPHYLAXIS
     Dosage: 6 MG, Q3WK
     Route: 058
     Dates: start: 20120915, end: 20121114
  2. CYTOXAN [Concomitant]
     Indication: B-CELL LYMPHOMA
     Dosage: UNK
     Route: 042
     Dates: start: 20121109, end: 20121113
  3. PREDNISOLONE [Concomitant]
     Indication: B-CELL LYMPHOMA
     Dosage: 10 MG, UNK
     Route: 048
     Dates: start: 20121109, end: 20121113
  4. ADRIAMYCIN                         /00330901/ [Concomitant]
     Indication: B-CELL LYMPHOMA
     Dosage: UNK
     Route: 042
     Dates: start: 20121109, end: 20121113
  5. ONCOVIN [Concomitant]
     Indication: B-CELL LYMPHOMA
     Dosage: UNK
     Route: 042
     Dates: start: 20121109, end: 20121113
  6. HYDROCODONE [Concomitant]
     Dosage: 7.5/325MG
  7. HYDROCODONE [Concomitant]
     Dosage: 5/325MG
  8. LORAZEPAM [Concomitant]
     Dosage: 1 MG AS NEEDED
     Route: 048
  9. LOSARTAN                           /01121602/ [Concomitant]
     Dosage: 25 MG, QD
     Route: 048
  10. ATENOLOL [Concomitant]
     Dosage: 50 MG TABS, 1 TABLET IN THE AM; ANOTHER 1/2 AT PM.
  11. ALLOPURINOL [Concomitant]
     Dosage: 300 MG, QD
     Route: 048
  12. PROCHLORPERAZINE MALEATE KENT PHARM [Concomitant]
     Dosage: 10 MG, UNK
  13. LUPRON DEPOT [Concomitant]
     Dosage: 45 MG, Q6MO
     Route: 058
  14. BICALUTAMIDE ACCORD [Concomitant]
     Dosage: 50 MG, QD
     Route: 048
  15. ALENDRONATE SODIUM [Concomitant]
     Dosage: 70 MG, QWK
     Route: 048
  16. ZOLPIDEM TARTRATE [Concomitant]
     Dosage: 10 MG (ONE TABLET AT BEDTIME AS NEEDED)
  17. COUMADIN                           /00014802/ [Concomitant]
     Dosage: 5 MG, FROM TUESDAY TO SUNDAY.
  18. COUMADIN                           /00014802/ [Concomitant]
     Dosage: 2.5 MG ON MONDAY

REACTIONS (7)
  - Pneumonia [Unknown]
  - White blood cell count increased [Recovering/Resolving]
  - Fatigue [Unknown]
  - Decreased appetite [Unknown]
  - Asthenia [Unknown]
  - Nausea [Unknown]
  - Bone pain [Recovered/Resolved]
